FAERS Safety Report 4363893-2 (Version None)
Quarter: 2004Q2

REPORT INFORMATION
  Report Type: 
  Country: None (occurrence: None)
  Receive Date: 20040519
  Receipt Date: 20040505
  Transmission Date: 20050107
  Serious: Yes (Other)
  Sender: FDA-Public Use
  Company Number: 060010K04BRA

PATIENT
  Age: 35 Year
  Sex: Female

DRUGS (1)
  1. SEROPHENE [Suspect]
     Indication: INFERTILITY FEMALE
     Dosage: 100 MG, 1 IN 1 DAYS, PER ORAL
     Route: 048
     Dates: start: 20040329, end: 20040402

REACTIONS (1)
  - BLINDNESS TRANSIENT [None]
